FAERS Safety Report 7498472-1 (Version None)
Quarter: 2011Q2

REPORT INFORMATION
  Report Type: 
  Country: None (occurrence: None)
  Receive Date: 20110524
  Receipt Date: 20091027
  Transmission Date: 20111010
  Serious: Yes (Hospitalization, Other)
  Sender: FDA-Public Use
  Company Number: US-BAYER-200937712NA

PATIENT
  Age: 52 Year
  Sex: Male
  Weight: 96 kg

DRUGS (49)
  1. TRASYLOL [Suspect]
     Indication: CARDIAC OPERATION
     Dosage: 200 ML, UNK
     Route: 042
     Dates: start: 20060701, end: 20060701
  2. COUMADIN [Concomitant]
     Dosage: 3-4MG, LONG TERM
     Route: 048
  3. FERROUS SULFATE TAB [Concomitant]
     Dosage: 325 MG, BID, LONG TERM
     Route: 048
  4. PRAVACHOL [Concomitant]
     Dosage: 40 MG, QD, LONG TERM USE
     Route: 048
  5. HEPARIN [Concomitant]
     Dosage: 30000 U, UNK
     Route: 042
  6. MILRINONE [Concomitant]
     Dosage: DRIP
     Route: 042
     Dates: start: 20060616, end: 20060726
  7. EPINEPHRINE [Concomitant]
     Dosage: 0.02-0.03MICROGRAM/KG/MINUTE
     Route: 042
     Dates: start: 20060701
  8. CALCIUM CHLORIDE [Concomitant]
     Dosage: 3 G, UNK
     Route: 042
     Dates: start: 20060630
  9. MAGNESIUM SULFATE [Concomitant]
     Dosage: 2 G, UNK
     Route: 042
     Dates: start: 20060630
  10. NEO-SYNEPHRINOL [Concomitant]
     Dosage: 120-200MICROGRAM/KG/MIN
     Route: 042
     Dates: start: 20060701
  11. PROTONIX [Concomitant]
     Dosage: 40 MG, UNK
     Route: 048
  12. TORSEMIDE [Concomitant]
     Dosage: 20 MG, QD, LONG TERM USE
     Route: 048
  13. MILRINONE [Concomitant]
     Dosage: 0.25 TO 0.5 MICROGRAM/KG/MIN
     Route: 042
     Dates: start: 20060616
  14. SOLU-MEDROL [Concomitant]
     Dosage: 1 G, UNK
     Route: 042
     Dates: start: 20060701, end: 20060701
  15. PHENYLEPHRINE HCL [Concomitant]
     Dosage: TITRATED
     Route: 042
     Dates: start: 20060701
  16. MIDAZOLAM HCL [Concomitant]
     Dosage: 4 MG, UNK
     Route: 042
     Dates: start: 20060630
  17. VASOPRESSIN [Concomitant]
     Dosage: 0.2UNITS/MINUTE
     Route: 042
     Dates: start: 20060701
  18. VASOPRESSIN [Concomitant]
     Dosage: 0.2-0.4UNITS/MIN
     Route: 042
     Dates: start: 20060701, end: 20060701
  19. NIACIN [Concomitant]
     Dosage: 500 MG, TID, LONG TERM USE
     Route: 048
  20. FENTANYL [Concomitant]
     Dosage: 250 ?G, UNK
     Route: 042
     Dates: start: 20060701
  21. LIDOCAINE [Concomitant]
     Dosage: 100 MG, UNK
     Route: 042
     Dates: start: 20060630
  22. LEVOPHED [Concomitant]
     Dosage: 3-6MICROGRAM/MINUTE
     Route: 042
     Dates: start: 20060701, end: 20060701
  23. AMINOCAPROIC ACID [Concomitant]
     Dosage: 10 G/HOUR
     Route: 042
     Dates: start: 20060701, end: 20060701
  24. HEPARIN [Concomitant]
  25. REFLUDAN [Concomitant]
     Dosage: 21 ?G, UNK
     Route: 042
     Dates: end: 20060630
  26. NEURONTIN [Concomitant]
     Dosage: 900 MG, QD, LONG TERM
     Route: 048
  27. INSULIN [Concomitant]
     Dosage: 2-4 UNITS/HOUR
     Route: 042
     Dates: start: 20060701
  28. ACETYLSALICYLIC ACID SRT [Concomitant]
     Dosage: 81 MG, TID, LONG TERM
     Route: 048
  29. CARVEDILOL [Concomitant]
     Dosage: 25 MG, BID, LONG TERM
     Route: 048
  30. HEPARIN [Concomitant]
     Dosage: 30000 U, UNK
     Route: 042
     Dates: start: 20060701, end: 20060701
  31. CEFEPIME [Concomitant]
     Dosage: 1 G, UNK
     Route: 048
  32. TRAZODONE HCL [Concomitant]
     Dosage: 100 MG, QD, LONG TERM
     Route: 048
  33. FENTANYL [Concomitant]
     Dosage: UNK
     Route: 042
     Dates: start: 20060630
  34. PANCURONIUM BROMIDE [Concomitant]
     Dosage: 15 MG, UNK
     Route: 042
     Dates: start: 20060701
  35. PROTAMINE SULFATE [Concomitant]
     Dosage: 250 MG, UNK
     Route: 042
     Dates: start: 20060701, end: 20060701
  36. SCOPOLAMINE [Concomitant]
     Dosage: 0.4 MG, UNK
     Route: 042
     Dates: start: 20060701, end: 20060701
  37. TRASYLOL [Suspect]
     Indication: HEART TRANSPLANT
     Dosage: 50ML/HOUR, INFUSION
     Route: 042
     Dates: start: 20060701, end: 20060701
  38. MILRINONE [Concomitant]
     Dosage: 0.5-0.7 MICROGRAM/KG/MINUTE
     Route: 042
     Dates: start: 20060616, end: 20060726
  39. CELLCEPT [Concomitant]
     Dosage: 1 G, UNK
     Route: 048
  40. MIDAZOLAM HCL [Concomitant]
     Dosage: 2 MG/HR, UNK
     Route: 042
     Dates: start: 20060630, end: 20060701
  41. EFFEXOR [Concomitant]
     Dosage: 225 MG, QD, LONG TERM
     Route: 048
  42. FOSAMAX [Concomitant]
     Dosage: 70 MG, WEEKLY, LONG TERM
     Route: 048
  43. LISINOPRIL [Concomitant]
     Dosage: 10 MG, ONCE TWICE DAILY, LONG TERM USE
     Route: 048
  44. VALSARTAN [Concomitant]
     Dosage: 80 MG, BID, LONG TERM
     Route: 048
  45. VANCOMYCIN [Concomitant]
     Dosage: 1 G, UNK
     Route: 042
  46. CALCIUM CARBONATE [Concomitant]
     Dosage: 600 MG, BID, LONG TERM
     Route: 048
  47. ETOMIDATE [Concomitant]
     Dosage: 12 MG, UNK
     Route: 042
     Dates: start: 20060630, end: 20060630
  48. EPINEPHRINE [Concomitant]
     Dosage: 0.025MICROGRAM/KG/MIGNUTE
     Route: 042
     Dates: start: 20060701
  49. LEVOPHED [Concomitant]
     Dosage: 4 MICROGRAM/MINUTE
     Route: 042
     Dates: start: 20060701

REACTIONS (6)
  - PSYCHIATRIC SYMPTOM [None]
  - RENAL FAILURE ACUTE [None]
  - PAIN [None]
  - RENAL FAILURE [None]
  - INJURY [None]
  - UNEVALUABLE EVENT [None]
